FAERS Safety Report 18685895 (Version 1)
Quarter: 2020Q4

REPORT INFORMATION
  Report Type: Spontaneous
  Country: JP (occurrence: JP)
  Receive Date: 20201231
  Receipt Date: 20201231
  Transmission Date: 20210114
  Serious: Yes (Death)
  Sender: FDA-Public Use
  Company Number: JP-AMGEN-JPNSP2020211715

PATIENT
  Age: 95 Year
  Sex: Female
  Weight: 24 kg

DRUGS (1)
  1. PRALIA [Suspect]
     Active Substance: DENOSUMAB
     Indication: OSTEOPOROSIS
     Dosage: 60 MILLIGRAM, Q6MO
     Route: 058
     Dates: start: 20170401, end: 20171031

REACTIONS (1)
  - Death [Fatal]

NARRATIVE: CASE EVENT DATE: 20180501
